FAERS Safety Report 10071895 (Version 2)
Quarter: 2014Q2

REPORT INFORMATION
  Report Type: Report from Study
  Country: AT (occurrence: AT)
  Receive Date: 20140411
  Receipt Date: 20140411
  Transmission Date: 20141212
  Serious: Yes (Other)
  Sender: FDA-Public Use
  Company Number: AT-ROCHE-1306544

PATIENT
  Sex: 0

DRUGS (1)
  1. BEVACIZUMAB [Suspect]
     Indication: BREAST CANCER METASTATIC
     Route: 065

REACTIONS (9)
  - Sepsis [Unknown]
  - Gastrointestinal perforation [Unknown]
  - Cardiac failure congestive [Unknown]
  - Myocardial infarction [Unknown]
  - Renal failure acute [Unknown]
  - Hypertension [Unknown]
  - Embolism [Unknown]
  - Haemorrhage [Unknown]
  - Proteinuria [Unknown]
